FAERS Safety Report 25133556 (Version 2)
Quarter: 2025Q2

REPORT INFORMATION
  Report Type: Spontaneous
  Country: JP (occurrence: JP)
  Receive Date: 20250328
  Receipt Date: 20250403
  Transmission Date: 20250716
  Serious: Yes (Hospitalization)
  Sender: ROCHE
  Company Number: JP-ROCHE-10000229689

PATIENT
  Age: 75 Year
  Sex: Male
  Weight: 57.5 kg

DRUGS (7)
  1. ACTEMRA [Suspect]
     Active Substance: TOCILIZUMAB
     Indication: Cytokine release syndrome
     Route: 042
  2. CELLCEPT [Suspect]
     Active Substance: MYCOPHENOLATE MOFETIL
     Indication: Renal impairment
     Route: 048
  3. PREDNISOLONE [Suspect]
     Active Substance: PREDNISOLONE
     Indication: Product used for unknown indication
     Route: 065
  4. PREDNISOLONE [Suspect]
     Active Substance: PREDNISOLONE
     Route: 065
  5. NIVOLUMAB [Concomitant]
     Active Substance: NIVOLUMAB
  6. IPILIMUMAB [Concomitant]
     Active Substance: IPILIMUMAB
  7. MEROPENEM [Concomitant]
     Active Substance: MEROPENEM

REACTIONS (4)
  - Cellulitis [Not Recovered/Not Resolved]
  - Bacteraemia [Unknown]
  - Achromobacter infection [Unknown]
  - Off label use [Unknown]
